FAERS Safety Report 10384199 (Version 2)
Quarter: 2014Q4

REPORT INFORMATION
  Report Type: Spontaneous
  Country: US (occurrence: None)
  Receive Date: 20140812
  Receipt Date: 20141106
  Transmission Date: 20150528
  Serious: Yes (Hospitalization)
  Sender: FDA-Public Use
  Company Number: 2014-US-009695

PATIENT
  Age: 54 Year
  Sex: Female

DRUGS (2)
  1. CLONAZEPAM. [Suspect]
     Active Substance: CLONAZEPAM
     Indication: PRODUCT USED FOR UNKNOWN INDICATION
     Dates: end: 201102
  2. XYREM [Suspect]
     Active Substance: SODIUM OXYBATE
     Indication: PRODUCT USED FOR UNKNOWN INDICATION
     Route: 048
     Dates: start: 20110213, end: 20110216

REACTIONS (5)
  - Anxiety [None]
  - Insomnia [None]
  - Hallucinations, mixed [None]
  - Drug withdrawal syndrome [None]
  - Psychotic disorder [None]

NARRATIVE: CASE EVENT DATE: 201102
